FAERS Safety Report 6571889-5 (Version None)
Quarter: 2010Q1

REPORT INFORMATION
  Report Type: 
  Country: None (occurrence: None)
  Receive Date: 20100205
  Receipt Date: 20090529
  Transmission Date: 20100710
  Serious: Yes (Other)
  Sender: FDA-Public Use
  Company Number: JP-ROCHE-639608

PATIENT
  Sex: Female
  Weight: 47.5 kg

DRUGS (45)
  1. ACTEMRA [Suspect]
     Indication: RHEUMATOID ARTHRITIS
     Route: 041
     Dates: start: 20080520, end: 20080520
  2. ACTEMRA [Suspect]
     Route: 041
     Dates: start: 20080617, end: 20080617
  3. ACTEMRA [Suspect]
     Route: 041
     Dates: start: 20080715, end: 20080715
  4. ACTEMRA [Suspect]
     Route: 041
     Dates: start: 20080812, end: 20080812
  5. ACTEMRA [Suspect]
     Route: 041
     Dates: start: 20080909, end: 20080909
  6. ACTEMRA [Suspect]
     Route: 041
     Dates: start: 20081006, end: 20081006
  7. ACTEMRA [Suspect]
     Route: 041
     Dates: start: 20081104, end: 20081104
  8. ACTEMRA [Suspect]
     Route: 041
     Dates: start: 20081209, end: 20090526
  9. RIMATIL [Concomitant]
     Route: 048
     Dates: start: 20080325, end: 20080408
  10. RIMATIL [Concomitant]
     Route: 048
     Dates: start: 20080409
  11. PREDONINE [Concomitant]
     Route: 048
     Dates: end: 20080509
  12. PREDONINE [Concomitant]
     Route: 048
     Dates: start: 20090520
  13. PREDNISOLONE [Concomitant]
     Dosage: FORM: ORAL FORMULATION (NOT OTHERWISE SPECIFIED)
     Route: 048
     Dates: start: 20080520, end: 20080616
  14. PREDNISOLONE [Concomitant]
     Route: 048
     Dates: start: 20080617, end: 20080714
  15. PREDNISOLONE [Concomitant]
     Route: 048
     Dates: start: 20080715, end: 20080812
  16. PREDNISOLONE [Concomitant]
     Route: 048
     Dates: start: 20080813, end: 20080902
  17. PREDNISOLONE [Concomitant]
     Route: 048
     Dates: start: 20080903
  18. DEXART [Concomitant]
     Route: 014
     Dates: start: 20080527, end: 20080527
  19. DEXART [Concomitant]
     Route: 014
     Dates: start: 20080716, end: 20080716
  20. DEXAMETHASONE PALMITATE [Concomitant]
     Dosage: ROUTE: INTRAVENOUS (NOT OTHERWISE SPECIFIED); DRUG REPORTED AS LIMETHASON
     Route: 042
     Dates: start: 20080902, end: 20080902
  21. DEXAMETHASONE PALMITATE [Concomitant]
     Route: 042
     Dates: start: 20081006, end: 20081006
  22. PREDNISOLONE [Concomitant]
     Dosage: DRUG REPORTED AS FARNEZONE (PREDNISOLINE FARNESYLATE)
     Route: 061
     Dates: start: 20080617
  23. HALCION [Concomitant]
     Route: 048
  24. BONALON [Concomitant]
     Dosage: DRUG REPORTED AS BONALON 5MG
     Route: 048
  25. OMEPRAL [Concomitant]
     Route: 048
  26. LOXONIN [Concomitant]
     Route: 048
  27. JUVELA [Concomitant]
     Route: 048
  28. ALINAMIN F [Concomitant]
     Route: 048
  29. METHYCOBAL [Concomitant]
     Route: 048
  30. CINAL [Concomitant]
     Dosage: ORAL FORMULATION (NOT OTHERWISE SPECIFIED)
     Route: 048
  31. RIZATRIPTAN BENZOATE [Concomitant]
     Dosage: DRUG REPORTED AS MAXALT.
     Route: 048
     Dates: start: 20080520, end: 20080525
  32. CATLEP [Concomitant]
     Dosage: FORM: TAPE; NOTE: TAKEN AS NEEDED
     Route: 061
  33. ELCITONIN [Concomitant]
     Dosage: DOSE: 20 UT; FREQUENCY: 1/1DAY
     Route: 030
     Dates: start: 20080617, end: 20081006
  34. XYLOCAINE [Concomitant]
     Route: 014
     Dates: start: 20080527, end: 20080527
  35. XYLOCAINE [Concomitant]
     Route: 014
     Dates: start: 20080716, end: 20080716
  36. XYLOCAINE [Concomitant]
     Route: 014
     Dates: start: 20080917, end: 20080917
  37. XYLOCAINE [Concomitant]
     Route: 014
     Dates: start: 20081112, end: 20081112
  38. VOLTAREN [Concomitant]
     Dosage: ROUTE: RECTAL SUPPOSITORY
     Route: 054
     Dates: start: 20080617
  39. FLAVITAN [Concomitant]
     Route: 048
  40. PYDOXAL [Concomitant]
     Dosage: DRUG REPORTED AS PYDOXAL TAB 20MG
     Route: 048
  41. NU-LOTAN [Concomitant]
     Route: 048
     Dates: start: 20080708
  42. CRAVIT [Concomitant]
     Route: 048
     Dates: start: 20080909, end: 20080915
  43. INDOMETACIN [Concomitant]
     Route: 061
     Dates: start: 20081209
  44. SODIUM HYALURONATE [Concomitant]
     Dosage: DRUG REPORTED AS ARTZ DISPO
     Route: 014
     Dates: start: 20080917, end: 20080917
  45. SODIUM HYALURONATE [Concomitant]
     Route: 014
     Dates: start: 20081112, end: 20081112

REACTIONS (2)
  - OSTEOMYELITIS [None]
  - TOOTH EXTRACTION [None]
